FAERS Safety Report 11304807 (Version 3)
Quarter: 2015Q4

REPORT INFORMATION
  Report Type: Spontaneous
  Country: SI (occurrence: SI)
  Receive Date: 20150723
  Receipt Date: 20151210
  Transmission Date: 20160304
  Serious: Yes (Hospitalization)
  Sender: FDA-Public Use
  Company Number: SI-BAUSCH-BL-2015-017471

PATIENT
  Age: 66 Year
  Sex: Male

DRUGS (7)
  1. ACETYLSALICYLIC ACID [Suspect]
     Active Substance: ASPIRIN
     Indication: SUICIDAL IDEATION
  2. BISOPROLOL [Suspect]
     Active Substance: BISOPROLOL
     Indication: SUICIDAL IDEATION
  3. AMLODIPINE [Suspect]
     Active Substance: AMLODIPINE BESYLATE
     Indication: SUICIDAL IDEATION
  4. TORASEMIDE [Suspect]
     Active Substance: TORSEMIDE
     Indication: SUICIDAL IDEATION
  5. NIFEDIPINE. [Suspect]
     Active Substance: NIFEDIPINE
     Indication: SUICIDAL IDEATION
  6. DOXAZOSIN [Suspect]
     Active Substance: DOXAZOSIN\DOXAZOSIN MESYLATE
     Indication: SUICIDAL IDEATION
  7. IBUPROFEN. [Suspect]
     Active Substance: IBUPROFEN
     Indication: SUICIDAL IDEATION

REACTIONS (7)
  - Bradycardia [Recovered/Resolved]
  - Overdose [Recovered/Resolved]
  - Suicide attempt [Recovered/Resolved]
  - Loss of consciousness [Recovered/Resolved]
  - Metabolic acidosis [Recovered/Resolved]
  - Left ventricular dysfunction [Recovered/Resolved]
  - Hypotension [Recovered/Resolved]
